FAERS Safety Report 5487804-1 (Version None)
Quarter: 2007Q3

REPORT INFORMATION
  Report Type: 
  Country: None (occurrence: None)
  Receive Date: 20070925
  Receipt Date: 20070618
  Transmission Date: 20080115
  Serious: No
  Sender: FDA-Public Use
  Company Number: 2007US001086

PATIENT
  Age: 70 Year
  Sex: Male

DRUGS (14)
  1. VESICARE [Suspect]
     Indication: URGE INCONTINENCE
     Dosage: 5 MG, UID/QD, ORAL
     Route: 048
     Dates: start: 20070301, end: 20070501
  2. IMIPRAMINE [Concomitant]
  3. FLOMAX (MORNIFLUMATE) [Concomitant]
  4. AVODART [Concomitant]
  5. AMOXICILLIN [Concomitant]
  6. SAW PALMETTO (SERENOA REPENS) [Concomitant]
  7. AVALIDE [Concomitant]
  8. FOLPEX [Concomitant]
  9. CADUET (AMLODIPINE BESILATE, ATORVASTATIN CALCIUM) [Concomitant]
  10. NEXIUM [Concomitant]
  11. D-40 [Concomitant]
  12. C + E (ASCORBIC ACID) [Concomitant]
  13. ZINC (OLEIC ACID, LANOLIN) [Concomitant]
  14. PRIMAL DEFENSE [Concomitant]

REACTIONS (1)
  - URGE INCONTINENCE [None]
